FAERS Safety Report 17281114 (Version 2)
Quarter: 2020Q1

REPORT INFORMATION
  Report Type: Report from Study
  Country: ES (occurrence: ES)
  Receive Date: 20200117
  Receipt Date: 20200124
  Transmission Date: 20200409
  Serious: Yes (Hospitalization)
  Sender: FDA-Public Use
  Company Number: ES-AMGEN-ESPNI2020004977

PATIENT
  Age: 63 Year
  Sex: Female
  Weight: 72.9 kg

DRUGS (7)
  1. 5 FU [Concomitant]
     Active Substance: FLUOROURACIL
     Dosage: 4200 MILLIGRAM, Q2WK
     Route: 042
     Dates: start: 20190722
  2. OXALIPLATIN. [Concomitant]
     Active Substance: OXALIPLATIN
     Dosage: 150 MILLIGRAM, Q2WK
     Route: 042
     Dates: start: 20190722
  3. 5 FU [Concomitant]
     Active Substance: FLUOROURACIL
     Dosage: 690 MILLIGRAM, Q2WK
     Route: 040
     Dates: start: 20190722
  4. PANITUMUMAB [Suspect]
     Active Substance: PANITUMUMAB
     Indication: COLORECTAL CANCER
     Dosage: 440 MILLIGRAM, Q2WK
     Route: 042
     Dates: start: 20190722
  5. FOLINIC ACID [Concomitant]
     Active Substance: LEUCOVORIN
     Dosage: 690 MILLIGRAM, Q2WK
     Route: 042
     Dates: start: 20190722
  6. ENOXAPARIN [Concomitant]
     Active Substance: ENOXAPARIN
     Dosage: 40 MILLIGRAM, QD (1/24 H)
     Route: 058
     Dates: start: 20191227, end: 20191231
  7. BEMIPARIN SODIUM [Concomitant]
     Active Substance: BEMIPARIN SODIUM
     Dosage: 3500 IU INTERNATIONAL UNIT(S), QD (1/24H)
     Route: 058
     Dates: start: 20191228, end: 20191231

REACTIONS (1)
  - Urinary tract infection [Recovered/Resolved]

NARRATIVE: CASE EVENT DATE: 20191227
